FAERS Safety Report 7194448-2 (Version None)
Quarter: 2010Q4

REPORT INFORMATION
  Report Type: 
  Country: None (occurrence: None)
  Receive Date: 20101223
  Receipt Date: 20101215
  Transmission Date: 20110411
  Serious: Yes (Hospitalization)
  Sender: FDA-Public Use
  Company Number: GB-ELI_LILLY_AND_COMPANY-GB201010003717

PATIENT
  Sex: Male
  Weight: 87 kg

DRUGS (2)
  1. GEMCITABINE HCL [Suspect]
     Indication: NON-SMALL CELL LUNG CANCER
     Dosage: 1292 MG, OTHER
     Route: 042
     Dates: start: 20100609, end: 20101006
  2. CISPLATIN [Suspect]
     Indication: NON-SMALL CELL LUNG CANCER
     Dosage: 78 MG, OTHER
     Route: 042
     Dates: start: 20100609

REACTIONS (2)
  - CHILLS [None]
  - PNEUMONIA [None]
